FAERS Safety Report 24642608 (Version 1)
Quarter: 2024Q4

REPORT INFORMATION
  Report Type: Report from Study
  Country: TW (occurrence: TW)
  Receive Date: 20241120
  Receipt Date: 20241120
  Transmission Date: 20250115
  Serious: Yes (Death, Other)
  Sender: ALEXION PHARMACEUTICALS
  Company Number: TW-AstraZeneca-CH-00731518A

PATIENT
  Age: 87 Year
  Weight: 50 kg

DRUGS (4)
  1. DURVALUMAB [Suspect]
     Active Substance: DURVALUMAB
     Indication: Cholangiocarcinoma
     Dosage: FREQUENCY:EVERY 3 WEEKS
  2. DURVALUMAB [Suspect]
     Active Substance: DURVALUMAB
     Indication: Lung neoplasm malignant
     Dosage: FREQUENCY:EVERY 3 WEEKS
  3. DURVALUMAB [Suspect]
     Active Substance: DURVALUMAB
     Dosage: FREQUENCY:EVERY 3 WEEKS
  4. DURVALUMAB [Suspect]
     Active Substance: DURVALUMAB
     Dosage: FREQUENCY:EVERY 3 WEEKS

REACTIONS (5)
  - Death [Fatal]
  - Pulmonary oedema [Unknown]
  - General physical health deterioration [Unknown]
  - Productive cough [Unknown]
  - Drug ineffective [Unknown]
